FAERS Safety Report 9227298 (Version 2)
Quarter: 2013Q2

REPORT INFORMATION
  Report Type: Spontaneous
  Country: US (occurrence: US)
  Receive Date: 20130412
  Receipt Date: 20130430
  Transmission Date: 20140414
  Serious: Yes (Hospitalization, Other)
  Sender: FDA-Public Use
  Company Number: PHEH2013US008094

PATIENT
  Age: 47 Year
  Sex: Female

DRUGS (7)
  1. GILENYA [Suspect]
     Indication: MULTIPLE SCLEROSIS
     Dosage: 0.5 MG, QD
     Route: 048
     Dates: start: 20121102, end: 20130404
  2. GABAPENTIN [Concomitant]
  3. SERTRALINE [Concomitant]
  4. PERCOCET [Concomitant]
  5. ZOFRAN [Concomitant]
  6. AMITRIPTYLINE [Concomitant]
  7. KLONOPIN [Concomitant]

REACTIONS (1)
  - Hypertensive crisis [Recovered/Resolved]
